FAERS Safety Report 18221211 (Version 1)
Quarter: 2020Q3

REPORT INFORMATION
  Report Type: Spontaneous
  Country: US (occurrence: US)
  Receive Date: 20200901
  Receipt Date: 20200901
  Transmission Date: 20201103
  Serious: No
  Sender: FDA-Public Use
  Company Number: None

PATIENT
  Age: 74 Year
  Sex: Male
  Weight: 75 kg

DRUGS (13)
  1. VANCOMYCIN IV [Concomitant]
     Active Substance: VANCOMYCIN HYDROCHLORIDE
     Dates: start: 20200823, end: 20200831
  2. FAMOTIDINE. [Concomitant]
     Active Substance: FAMOTIDINE
     Dates: start: 20200822
  3. PIPERACILLIN AND TAZOBACTAM [Concomitant]
     Active Substance: PIPERACILLIN SODIUM\TAZOBACTAM SODIUM
     Dates: start: 20200820, end: 20200831
  4. NIMBEX DRIP [Concomitant]
     Dates: start: 20200823, end: 20200826
  5. NOREPINEPHRINE DRIP [Concomitant]
     Dates: start: 20200822, end: 20200827
  6. MIDAZOLAM DRIP [Concomitant]
     Dates: start: 20200823, end: 20200827
  7. ZONISAMIDE (HOME MED) [Concomitant]
     Dates: start: 20200822
  8. AZITHROMYCIN ANHYDROUS. [Concomitant]
     Active Substance: AZITHROMYCIN ANHYDROUS
     Dates: start: 20200820, end: 20200830
  9. PROPOFOL DRIP [Concomitant]
     Active Substance: PROPOFOL
     Dates: start: 20200822, end: 20200825
  10. FENTANYL DRIP [Concomitant]
     Dates: start: 20200822, end: 20200830
  11. CARBAMEZEPINE (HOME MED) [Concomitant]
     Dates: start: 20200822, end: 20200826
  12. REMDESIVIR. [Suspect]
     Active Substance: REMDESIVIR
     Indication: COVID-19
     Route: 040
     Dates: start: 20200822, end: 20200826
  13. FUROSEMIDE. [Concomitant]
     Active Substance: FUROSEMIDE
     Dates: start: 20200822

REACTIONS (2)
  - Alanine aminotransferase increased [None]
  - Aspartate aminotransferase increased [None]

NARRATIVE: CASE EVENT DATE: 20200826
